FAERS Safety Report 6121217-4 (Version None)
Quarter: 2009Q1

REPORT INFORMATION
  Report Type: 
  Country: None (occurrence: None)
  Receive Date: 20090312
  Receipt Date: 20090224
  Transmission Date: 20090719
  Serious: Yes (Other)
  Sender: FDA-Public Use
  Company Number: 000473

PATIENT
  Age: 24 Year
  Sex: Male
  Weight: 75 kg

DRUGS (5)
  1. LACOSAMIDE [Suspect]
     Indication: EPILEPSY
     Dosage: 50 MG, BID, ORAL
     Route: 048
     Dates: start: 20090201, end: 20090201
  2. MIZOLEN [Concomitant]
  3. TEGRETOL [Concomitant]
  4. PHENYTOIN SODIUM CAP [Concomitant]
  5. NEURONTIN [Concomitant]

REACTIONS (1)
  - CONVULSION [None]
